FAERS Safety Report 24077273 (Version 5)
Quarter: 2024Q3

REPORT INFORMATION
  Report Type: Report from Study
  Country: KR (occurrence: KR)
  Receive Date: 20240711
  Receipt Date: 20240910
  Transmission Date: 20241017
  Serious: Yes (Hospitalization)
  Sender: ABBVIE
  Company Number: KR-ABBVIE-5832966

PATIENT
  Age: 74 Year
  Sex: Male
  Weight: 76 kg

DRUGS (18)
  1. VENCLEXTA [Suspect]
     Active Substance: VENETOCLAX
     Indication: Acute myeloid leukaemia
     Route: 048
     Dates: start: 20240616, end: 20240616
  2. VENCLEXTA [Suspect]
     Active Substance: VENETOCLAX
     Indication: Acute myeloid leukaemia
     Route: 048
     Dates: start: 20240617, end: 20240617
  3. VENCLEXTA [Suspect]
     Active Substance: VENETOCLAX
     Indication: Acute myeloid leukaemia
     Route: 048
     Dates: start: 20240618, end: 20240706
  4. VENCLEXTA [Suspect]
     Active Substance: VENETOCLAX
     Indication: Acute myeloid leukaemia
     Route: 048
     Dates: start: 20240729, end: 20240811
  5. Cycin [Concomitant]
     Indication: Enterobacter bacteraemia
     Route: 048
     Dates: start: 20240901
  6. LIPITOR [Concomitant]
     Active Substance: ATORVASTATIN CALCIUM
     Indication: Dyslipidaemia
     Dosage: FORM STRENGTH: 10MG
     Route: 048
  7. PLAVITOR [Concomitant]
     Indication: Angina pectoris
     Route: 048
  8. NICORANDIL [Concomitant]
     Active Substance: NICORANDIL
     Indication: Angina pectoris
     Dosage: FORM STRENGTH: 5 MG
     Route: 048
  9. ALLOPURINOL [Concomitant]
     Active Substance: ALLOPURINOL
     Indication: Tumour lysis syndrome
     Dosage: TIME INTERVAL: 0.33333333 DAYS: FORM STRENGTH: 100MG
     Route: 048
     Dates: start: 20240617
  10. DACOGEN [Concomitant]
     Active Substance: DECITABINE
     Indication: Acute myeloid leukaemia
     Route: 042
     Dates: start: 20240729, end: 20240802
  11. DACOGEN [Concomitant]
     Active Substance: DECITABINE
     Indication: Acute myeloid leukaemia
     Route: 042
     Dates: start: 20240616, end: 20240620
  12. VIMOVO [Concomitant]
     Active Substance: ESOMEPRAZOLE MAGNESIUM\NAPROXEN
     Indication: Pyrexia
     Dosage: 500/20MG?1 DOSAGE FORM
     Route: 048
     Dates: start: 20240613, end: 20240627
  13. Citopcin [Concomitant]
     Indication: Infection prophylaxis
     Dosage: FORM STRENGTH: 250 MG
     Route: 048
     Dates: start: 20240715, end: 20240818
  14. AVIBACTAM SODIUM\CEFTAZIDIME [Concomitant]
     Active Substance: AVIBACTAM SODIUM\CEFTAZIDIME
     Indication: Enterobacter sepsis
     Dosage: TIME INTERVAL: 0.33333333 DAYS: UNIT DOSE: 1 VIAL
     Route: 042
     Dates: start: 20240823, end: 20240901
  15. CONBLOC [Concomitant]
     Indication: Angina pectoris
     Dosage: FORM STRENGTH: 5MG
     Route: 048
  16. TORSEMIDE [Concomitant]
     Active Substance: TORSEMIDE
     Indication: Hypertension
     Dosage: FORM STRENGTH: 5MG
     Route: 048
  17. DILTIAZEM HYDROCHLORIDE [Concomitant]
     Active Substance: DILTIAZEM HYDROCHLORIDE
     Indication: Angina pectoris
     Dosage: FORM STRENGTH: 90MG
     Route: 048
  18. Meropen Yuhan [Concomitant]
     Indication: Bacteraemia
     Dosage: TIME INTERVAL: 0.33333333 DAYS: 500 MG
     Route: 042
     Dates: start: 20240821, end: 20240823

REACTIONS (2)
  - C-reactive protein increased [Recovered/Resolved]
  - Pyrexia [Recovered/Resolved]

NARRATIVE: CASE EVENT DATE: 20240704
